FAERS Safety Report 17128586 (Version 1)
Quarter: 2019Q4

REPORT INFORMATION
  Report Type: Spontaneous
  Country: US (occurrence: US)
  Receive Date: 20191115
  Receipt Date: 20191115
  Transmission Date: 20200122
  Serious: No
  Sender: FDA-Public Use
  Company Number: None

PATIENT
  Age: 51 Year
  Sex: Male

DRUGS (2)
  1. XELJANZ [Suspect]
     Active Substance: TOFACITINIB CITRATE
     Indication: RHEUMATOID ARTHRITIS
     Route: 048
     Dates: start: 201310
  2. XELJANZ [Suspect]
     Active Substance: TOFACITINIB CITRATE
     Indication: SENILE OSTEOPOROSIS
     Route: 048
     Dates: start: 201310

REACTIONS (1)
  - Arthropathy [None]
